FAERS Safety Report 5123142-4 (Version None)
Quarter: 2006Q4

REPORT INFORMATION
  Report Type: 
  Country: None (occurrence: None)
  Receive Date: 20061009
  Receipt Date: 20060929
  Transmission Date: 20070319
  Serious: Yes (Death)
  Sender: FDA-Public Use
  Company Number: US-JNJFOC-20061000263

PATIENT
  Sex: Male

DRUGS (4)
  1. RISPERDAL [Suspect]
     Indication: OBSESSIVE-COMPULSIVE DISORDER
  2. RISPERDAL [Suspect]
     Indication: TOURETTE'S DISORDER
  3. SEROQUEL [Suspect]
     Indication: OBSESSIVE-COMPULSIVE DISORDER
  4. SEROQUEL [Suspect]
     Indication: TOURETTE'S DISORDER

REACTIONS (1)
  - PANCREATITIS ACUTE [None]
